FAERS Safety Report 7852604-1 (Version None)
Quarter: 2011Q4

REPORT INFORMATION
  Report Type: 
  Country: None (occurrence: None)
  Receive Date: 20111026
  Receipt Date: 20111019
  Transmission Date: 20120403
  Serious: Yes (Death, Other)
  Sender: FDA-Public Use
  Company Number: US-GLAXOSMITHKLINE-A0945024A

PATIENT
  Age: 69 Year
  Sex: Female

DRUGS (2)
  1. CORTICOSTEROIDS [Concomitant]
  2. PROMACTA [Suspect]
     Indication: IDIOPATHIC THROMBOCYTOPENIC PURPURA
     Dosage: 75MG PER DAY
     Route: 048
     Dates: start: 20091123, end: 20100927

REACTIONS (18)
  - ACUTE MYELOID LEUKAEMIA [None]
  - PERFORMANCE STATUS DECREASED [None]
  - WEIGHT DECREASED [None]
  - ANAEMIA [None]
  - LEUKOCYTOSIS [None]
  - ASTHENIA [None]
  - DYSPNOEA [None]
  - MYELOFIBROSIS [None]
  - DRUG INEFFECTIVE [None]
  - PETECHIAE [None]
  - DECREASED APPETITE [None]
  - WAIST CIRCUMFERENCE INCREASED [None]
  - HEPATOMEGALY [None]
  - CHRONIC MYELOID LEUKAEMIA [None]
  - SPLENOMEGALY [None]
  - BLAST CELL PROLIFERATION [None]
  - FATIGUE [None]
  - PALLOR [None]
